FAERS Safety Report 4666478-3 (Version None)
Quarter: 2005Q2

REPORT INFORMATION
  Report Type: 
  Country: None (occurrence: None)
  Receive Date: 20050519
  Receipt Date: 20050517
  Transmission Date: 20051028
  Serious: Yes (Disabling)
  Sender: FDA-Public Use
  Company Number: PHBS2005CO07001

PATIENT
  Age: 75 Year
  Sex: Female

DRUGS (6)
  1. RIVOTRIL [Concomitant]
  2. FLUOXETINE [Concomitant]
  3. LEXOTAN [Concomitant]
  4. ISOPTIN [Concomitant]
     Dosage: 80 MG, BID
     Route: 048
  5. HYDROCHLOROTHIAZIDE [Concomitant]
     Dosage: 25 MG/D
  6. TRILEPTAL [Suspect]
     Route: 048

REACTIONS (15)
  - ABDOMINAL PAIN [None]
  - ANXIETY [None]
  - COORDINATION ABNORMAL [None]
  - DIZZINESS [None]
  - FEELING JITTERY [None]
  - HYPONATRAEMIA [None]
  - INSOMNIA [None]
  - NEUROLEPTIC MALIGNANT SYNDROME [None]
  - NYSTAGMUS [None]
  - OEDEMA PERIPHERAL [None]
  - TACHYPHYLAXIS [None]
  - TREMOR [None]
  - URINARY INCONTINENCE [None]
  - VISION BLURRED [None]
  - WALKING DISABILITY [None]
